FAERS Safety Report 9397212 (Version 5)
Quarter: 2014Q1

REPORT INFORMATION
  Report Type: Report from Study
  Country: CA (occurrence: CA)
  Receive Date: 20130712
  Receipt Date: 20140226
  Transmission Date: 20141002
  Serious: Yes (Life-Threatening, Hospitalization, Other)
  Sender: FDA-Public Use
  Company Number: CA-JNJFOC-20130706187

PATIENT
  Age: 62 Year
  Sex: Female
  Weight: 54.43 kg

DRUGS (11)
  1. SIMPONI [Suspect]
     Indication: RHEUMATOID ARTHRITIS
     Route: 058
     Dates: start: 2010, end: 2013
  2. METHOTREXATE [Concomitant]
     Route: 058
  3. FLONASE [Concomitant]
     Dosage: 1 EACH NOSTRIL
     Route: 045
     Dates: start: 20130517
  4. APO-LORAZEPAM [Concomitant]
     Dosage: AS DIRECTED
     Route: 048
     Dates: start: 20130115
  5. IMOVANE [Concomitant]
     Dosage: AT BEDTIME
     Route: 048
     Dates: start: 20110628
  6. VITAMIN D [Concomitant]
     Dosage: 50000 U 1 EVERY WEDNESDAY
     Route: 048
     Dates: start: 20110628
  7. ACTONEL [Concomitant]
     Dosage: EVERY WEDNESDAY IN THE MORNING
     Route: 048
     Dates: start: 20110628
  8. APO-MELOXICAM [Concomitant]
     Route: 048
     Dates: start: 20110628
  9. PREMARIN [Concomitant]
     Route: 048
     Dates: start: 20110628
  10. FOLIC ACID [Concomitant]
     Route: 048
     Dates: start: 20110628
  11. PLAQUENIL [Concomitant]
     Route: 048
     Dates: start: 20110628

REACTIONS (3)
  - Diffuse large B-cell lymphoma [Recovered/Resolved]
  - Joint arthroplasty [Recovered/Resolved]
  - Eye inflammation [Recovered/Resolved]
